FAERS Safety Report 4928626-7 (Version None)
Quarter: 2006Q1

REPORT INFORMATION
  Report Type: 
  Country: None (occurrence: None)
  Receive Date: 20060301
  Receipt Date: 20060220
  Transmission Date: 20060701
  Serious: Yes (Hospitalization)
  Sender: FDA-Public Use
  Company Number: NO-JNJFOC-20050201051

PATIENT
  Sex: Female

DRUGS (10)
  1. REMICADE [Suspect]
     Route: 042
  2. PREDNISOLONE [Suspect]
     Route: 065
  3. METHOTREXATE [Suspect]
     Route: 065
  4. CALCIGRAN FORTE [Concomitant]
     Route: 048
  5. CALCIGRAN FORTE [Concomitant]
     Route: 048
  6. CALCIGRAN FORTE [Concomitant]
     Route: 048
  7. CALCIGRAN FORTE [Concomitant]
     Indication: OSTEOPOROSIS
     Route: 048
  8. FOLIC ACID [Concomitant]
     Indication: RHEUMATOID ARTHRITIS
  9. VIOXX [Concomitant]
     Route: 065
  10. FOSAMAX [Concomitant]
     Indication: OSTEOPOROSIS

REACTIONS (2)
  - PNEUMONIA [None]
  - TUBERCULOSIS [None]
